FAERS Safety Report 9412195 (Version 3)
Quarter: 2013Q4

REPORT INFORMATION
  Report Type: Report from Study
  Country: US (occurrence: US)
  Receive Date: 20130722
  Receipt Date: 20131104
  Transmission Date: 20140711
  Serious: Yes (Death, Hospitalization)
  Sender: FDA-Public Use
  Company Number: US-BAYER-2013-088059

PATIENT
  Sex: Female

DRUGS (9)
  1. SORAFENIB (RAF KINASE INHIBITOR) [Suspect]
     Indication: ACUTE MYELOID LEUKAEMIA
     Dosage: 800 MG, BID
     Dates: start: 20130520, end: 20130616
  2. SORAFENIB (RAF KINASE INHIBITOR) [Suspect]
     Indication: ACUTE MYELOID LEUKAEMIA
     Dosage: 800 MG, BID
     Route: 048
     Dates: start: 20130617, end: 20130702
  3. FILGRASTIM [Suspect]
     Indication: ACUTE MYELOID LEUKAEMIA
     Dosage: 10 MCG/KG DAYS 1,3,5,7,9,11,13
     Route: 058
     Dates: start: 20130620, end: 20130629
  4. PLERIXAFOR [Suspect]
     Indication: ACUTE MYELOID LEUKAEMIA
     Dosage: 240 MCG/KG DAYS 1,3,5,7,9,11,13
     Route: 058
     Dates: start: 20130520, end: 20130629
  5. ACYCLOVIR [ACICLOVIR] [Concomitant]
     Indication: INFECTION PROPHYLAXIS
  6. LEVOFLOXACIN [Concomitant]
     Indication: INFECTION PROPHYLAXIS
  7. MINOCYCLINE [Concomitant]
     Indication: INFECTION PROPHYLAXIS
  8. VORICONAZOLE [Concomitant]
     Indication: INFECTION PROPHYLAXIS
  9. ZITHROMAX [Concomitant]
     Indication: INFECTION PROPHYLAXIS

REACTIONS (2)
  - Muscular weakness [None]
  - Pneumonia [Fatal]
